FAERS Safety Report 16144731 (Version 3)
Quarter: 2019Q4

REPORT INFORMATION
  Report Type: Report from Study
  Country: None (occurrence: BR)
  Receive Date: 20190402
  Receipt Date: 20191004
  Transmission Date: 20200122
  Serious: Yes (Other)
  Sender: FDA-Public Use
  Company Number: BR-ABBVIE-19P-020-2728348-00

PATIENT
  Sex: Female
  Weight: 80 kg

DRUGS (1)
  1. DEPAKOTE ER [Suspect]
     Active Substance: DIVALPROEX SODIUM
     Indication: SEIZURE PROPHYLAXIS
     Dosage: START DATE: PATIENT DOES NOT REMEMBER EXACTLY, BECAUSE SHE WAS HOSPITALIZED TWICE
     Route: 048

REACTIONS (4)
  - Postoperative thrombosis [Unknown]
  - Product use in unapproved indication [Unknown]
  - Off label use [Unknown]
  - Inappropriate schedule of product administration [Unknown]
